FAERS Safety Report 12315407 (Version 1)
Quarter: 2016Q2

REPORT INFORMATION
  Report Type: Spontaneous
  Country: FR (occurrence: FR)
  Receive Date: 20160428
  Receipt Date: 20160428
  Transmission Date: 20160815
  Serious: Yes (Other)
  Sender: FDA-Public Use
  Company Number: FR-ASTRAZENECA-2016SE43823

PATIENT
  Age: 865 Month
  Sex: Female

DRUGS (4)
  1. ARIMIDEX [Suspect]
     Active Substance: ANASTROZOLE
     Indication: BREAST CANCER FEMALE
     Route: 048
     Dates: start: 20110922, end: 201310
  2. FASLODEX [Suspect]
     Active Substance: FULVESTRANT
     Indication: BREAST CANCER FEMALE
     Route: 030
     Dates: start: 201310
  3. OROCAL D3 [Concomitant]
     Active Substance: CALCIUM CARBONATE\CHOLECALCIFEROL
     Dates: start: 201311
  4. XGEVA [Suspect]
     Active Substance: DENOSUMAB
     Indication: METASTASES TO BONE
     Route: 058
     Dates: start: 201311, end: 20150924

REACTIONS (7)
  - Metastases to spine [Unknown]
  - Osteolysis [Unknown]
  - Osteonecrosis of jaw [Not Recovered/Not Resolved]
  - Osteoarthritis [Unknown]
  - Malignant neoplasm progression [Unknown]
  - Gingival hypertrophy [Unknown]
  - Tooth abscess [Unknown]

NARRATIVE: CASE EVENT DATE: 201212
